FAERS Safety Report 19405537 (Version 1)
Quarter: 2021Q2

REPORT INFORMATION
  Report Type: Spontaneous
  Country: US (occurrence: US)
  Receive Date: 20210611
  Receipt Date: 20210611
  Transmission Date: 20210717
  Serious: No
  Sender: FDA-Public Use
  Company Number: US-NANJING KING-FRIEND BIOCHEMICAL PHARMACEUTICAL CO. LTD.-2021NKF00067

PATIENT

DRUGS (1)
  1. ENOXAPARIN SODIUM. [Suspect]
     Active Substance: ENOXAPARIN SODIUM
     Route: 058

REACTIONS (5)
  - Needle issue [Recovered/Resolved]
  - Accidental exposure to product [Recovered/Resolved]
  - Scratch [Unknown]
  - Foreign body in skin or subcutaneous tissue [Recovered/Resolved]
  - Exposure to body fluid [Recovered/Resolved]

NARRATIVE: CASE EVENT DATE: 20210518
